FAERS Safety Report 13343358 (Version 1)
Quarter: 2017Q1

REPORT INFORMATION
  Report Type: Spontaneous
  Country: IR (occurrence: IR)
  Receive Date: 20170316
  Receipt Date: 20170316
  Transmission Date: 20170428
  Serious: Yes (Death, Other)
  Sender: FDA-Public Use
  Company Number: IR-MYLANLABS-2017M1016102

PATIENT

DRUGS (1)
  1. TRAMADOL. [Suspect]
     Active Substance: TRAMADOL
     Indication: PRODUCT USED FOR UNKNOWN INDICATION
     Route: 048

REACTIONS (4)
  - Completed suicide [Fatal]
  - Cardio-respiratory arrest [Fatal]
  - Intentional overdose [Fatal]
  - Generalised tonic-clonic seizure [Fatal]
